FAERS Safety Report 4858235-X (Version None)
Quarter: 2005Q4

REPORT INFORMATION
  Report Type: 
  Country: None (occurrence: None)
  Receive Date: 20051219
  Receipt Date: 20050322
  Transmission Date: 20060501
  Serious: No
  Sender: FDA-Public Use
  Company Number: US-GLAXOSMITHKLINE-A0550808A

PATIENT
  Age: 32 Year
  Sex: Female

DRUGS (2)
  1. NICODERM CQ [Suspect]
     Dates: start: 20050315
  2. TOPAMAX [Concomitant]

REACTIONS (5)
  - FEELING JITTERY [None]
  - HEADACHE [None]
  - MIGRAINE [None]
  - NERVOUSNESS [None]
  - SLEEP DISORDER [None]
